FAERS Safety Report 8989341 (Version 1)
Quarter: 2012Q4

REPORT INFORMATION
  Report Type: Report from Study
  Country: NO (occurrence: NO)
  Receive Date: 20121227
  Receipt Date: 20121227
  Transmission Date: 20130627
  Serious: Yes (Hospitalization)
  Sender: FDA-Public Use
  Company Number: NO-BAXTER-2012BAX027840

PATIENT
  Age: 50 Year
  Sex: Female
  Weight: 79 kg

DRUGS (7)
  1. SENDOXAN 1000 MG PULVER TIL INJEKSJONSV?SKE, OPPL?SNING [Suspect]
     Indication: BREAST CANCER
     Route: 065
     Dates: start: 20090424, end: 20090424
  2. SENDOXAN 1000 MG PULVER TIL INJEKSJONSV?SKE, OPPL?SNING [Suspect]
     Route: 065
     Dates: start: 20090515
  3. BEVACIZUMAB [Suspect]
     Indication: BREAST CANCER
     Route: 042
  4. FLUOROURACIL [Suspect]
     Indication: BREAST CANCER
     Route: 065
     Dates: start: 20090424, end: 20090424
  5. FLUOROURACIL [Suspect]
     Route: 065
     Dates: start: 20090515
  6. EPIRUBICIN [Suspect]
     Indication: BREAST CANCER
     Route: 065
     Dates: start: 20090424, end: 20090424
  7. EPIRUBICIN [Suspect]
     Route: 065
     Dates: start: 20090515

REACTIONS (2)
  - Tonsillitis [Recovered/Resolved]
  - Febrile neutropenia [Recovered/Resolved]
